FAERS Safety Report 18151388 (Version 1)
Quarter: 2020Q3

REPORT INFORMATION
  Report Type: Report from Study
  Country: CA (occurrence: CA)
  Receive Date: 20200814
  Receipt Date: 20200814
  Transmission Date: 20201103
  Serious: Yes (Hospitalization)
  Sender: FDA-Public Use
  Company Number: CA-JNJFOC-20200807774

PATIENT
  Age: 32 Year
  Sex: Male
  Weight: 73 kg

DRUGS (1)
  1. REMICADE [Suspect]
     Active Substance: INFLIXIMAB
     Indication: COLITIS ULCERATIVE
     Dosage: PATIENT^S LAST DOSE ON 09?JUN?2020
     Route: 042
     Dates: start: 20200429

REACTIONS (1)
  - Cytomegalovirus test positive [Unknown]

NARRATIVE: CASE EVENT DATE: 20200804
